APPROVED DRUG PRODUCT: BISOPROLOL FUMARATE
Active Ingredient: BISOPROLOL FUMARATE
Strength: 2.5MG
Dosage Form/Route: TABLET;ORAL
Application: A075643 | Product #003
Applicant: RUBICON RESEARCH LTD
Approved: Mar 7, 2025 | RLD: No | RS: No | Type: RX